FAERS Safety Report 21258021 (Version 1)
Quarter: 2022Q3

REPORT INFORMATION
  Report Type: Spontaneous
  Country: CN (occurrence: None)
  Receive Date: 20220826
  Receipt Date: 20220826
  Transmission Date: 20221027
  Serious: Yes (Disabling)
  Sender: FDA-Public Use
  Company Number: 2022A293545

PATIENT
  Age: 3654 Week
  Sex: Male
  Weight: 51 kg

DRUGS (2)
  1. DAPAGLIFLOZIN [Suspect]
     Active Substance: DAPAGLIFLOZIN
     Indication: Diabetes mellitus
     Route: 048
     Dates: start: 20220806, end: 20220819
  2. ALLISARTAN ISOPROXIL [Concomitant]
     Active Substance: ALLISARTAN ISOPROXIL
     Indication: Hypertension
     Route: 048
     Dates: start: 20220806, end: 20220819

REACTIONS (1)
  - Nasal vestibulitis [Not Recovered/Not Resolved]

NARRATIVE: CASE EVENT DATE: 20220810
